FAERS Safety Report 19251123 (Version 2)
Quarter: 2021Q2

REPORT INFORMATION
  Report Type: Spontaneous
  Country: SI (occurrence: SI)
  Receive Date: 20210513
  Receipt Date: 20210617
  Transmission Date: 20210717
  Serious: Yes (Other)
  Sender: FDA-Public Use
  Company Number: SI-ROCHE-2826485

PATIENT
  Sex: Female

DRUGS (10)
  1. ABEMACICLIB [Suspect]
     Active Substance: ABEMACICLIB
     Indication: BREAST CANCER METASTATIC
     Dosage: UNK
     Route: 065
     Dates: start: 202007, end: 202008
  2. CAPECITABINE. [Suspect]
     Active Substance: CAPECITABINE
     Indication: BREAST CANCER METASTATIC
     Dosage: UNK (2 YEARS AND 9 MONTHS)
     Route: 065
     Dates: start: 201612, end: 201908
  3. CLODRONATE DISODIUM [Concomitant]
     Active Substance: CLODRONATE DISODIUM
     Dosage: UNK (STOPPED AFTER 5 YEARS)
     Route: 065
  4. FULVESTRANT. [Suspect]
     Active Substance: FULVESTRANT
     Dosage: UNK (1 YEAR AND 3 MONTHS)
     Route: 065
     Dates: start: 201504, end: 201606
  5. MEGESTROL ACETATE. [Suspect]
     Active Substance: MEGESTROL ACETATE
     Indication: BREAST CANCER METASTATIC
     Dosage: UNK (MAINTENANCE THERAPY)
     Route: 065
     Dates: start: 201612, end: 201711
  6. CLODRONATE DISODIUM [Concomitant]
     Active Substance: CLODRONATE DISODIUM
     Indication: PRODUCT USED FOR UNKNOWN INDICATION
     Dosage: UNK
     Route: 065
     Dates: start: 201505, end: 201505
  7. PACLITAXEL. [Suspect]
     Active Substance: PACLITAXEL
     Indication: BREAST CANCER METASTATIC
     Dosage: UNK (5 + 5 MONTHS)
     Route: 065
     Dates: start: 201909, end: 202001
  8. EXEMESTANE. [Suspect]
     Active Substance: EXEMESTANE
     Indication: BREAST CANCER METASTATIC
     Dosage: UNK (9 MONTHS)
     Route: 065
     Dates: start: 201407, end: 201503
  9. FULVESTRANT. [Suspect]
     Active Substance: FULVESTRANT
     Indication: BREAST CANCER METASTATIC
     Dosage: UNK
     Route: 065
     Dates: start: 202007, end: 202008
  10. LETROZOLE. [Suspect]
     Active Substance: LETROZOLE
     Indication: BREAST CANCER METASTATIC
     Dosage: UNK (5 YEARS AND 8 MONTHS)
     Route: 065
     Dates: start: 200811, end: 201406

REACTIONS (13)
  - Liver disorder [Unknown]
  - Carbohydrate antigen 15-3 increased [Not Recovered/Not Resolved]
  - Arthralgia [Unknown]
  - Hepatic steatosis [Not Recovered/Not Resolved]
  - Hepatic lesion [Unknown]
  - Bone pain [Unknown]
  - Breast cancer metastatic [Not Recovered/Not Resolved]
  - Metastases to lung [Unknown]
  - Pulmonary mass [Unknown]
  - PIK3CA-activated mutation [Unknown]
  - Weight decreased [Unknown]
  - Neutropenia [Unknown]
  - Metastases to liver [Not Recovered/Not Resolved]

NARRATIVE: CASE EVENT DATE: 201406
